FAERS Safety Report 10454274 (Version 1)
Quarter: 2014Q3

REPORT INFORMATION
  Report Type: Report from Study
  Country: CA (occurrence: CA)
  Receive Date: 20140915
  Receipt Date: 20140915
  Transmission Date: 20150326
  Serious: Yes (Life-Threatening, Hospitalization)
  Sender: FDA-Public Use
  Company Number: PHHY2014CA110762

PATIENT
  Age: 26 Year
  Sex: Male

DRUGS (4)
  1. CLOZARIL [Suspect]
     Active Substance: CLOZAPINE
     Indication: SCHIZOPHRENIA
     Dosage: 100 UKN
     Route: 048
     Dates: start: 20140612, end: 20140807
  2. METFORMIN [Concomitant]
     Active Substance: METFORMIN HYDROCHLORIDE
     Dosage: 1000 MG, BID
     Route: 048
  3. CLOZARIL [Suspect]
     Active Substance: CLOZAPINE
     Indication: TARDIVE DYSKINESIA
  4. ESCITALOPRAM [Concomitant]
     Active Substance: ESCITALOPRAM OXALATE
     Dosage: 10 MG, QAM
     Route: 048

REACTIONS (16)
  - Aplastic anaemia [Not Recovered/Not Resolved]
  - Blood glucose decreased [Not Recovered/Not Resolved]
  - Bone marrow failure [Not Recovered/Not Resolved]
  - Confusional state [Not Recovered/Not Resolved]
  - Haemolysis [Not Recovered/Not Resolved]
  - Coma [Not Recovered/Not Resolved]
  - Neutrophil count decreased [Unknown]
  - Nervous system disorder [Not Recovered/Not Resolved]
  - Renal failure acute [Not Recovered/Not Resolved]
  - Hypotension [Not Recovered/Not Resolved]
  - Diabetic ketoacidosis [Unknown]
  - Pneumonia aspiration [Not Recovered/Not Resolved]
  - White blood cell count decreased [Not Recovered/Not Resolved]
  - Sepsis [Not Recovered/Not Resolved]
  - Unresponsive to stimuli [Not Recovered/Not Resolved]
  - Hyperglycaemia [Not Recovered/Not Resolved]

NARRATIVE: CASE EVENT DATE: 20140807
